FAERS Safety Report 6781565-1 (Version None)
Quarter: 2010Q2

REPORT INFORMATION
  Report Type: 
  Country: None (occurrence: None)
  Receive Date: 20100621
  Receipt Date: 20100614
  Transmission Date: 20101027
  Serious: Yes (Hospitalization)
  Sender: FDA-Public Use
  Company Number: DE-WYE-G06268710

PATIENT
  Age: 43 Year
  Sex: Female
  Weight: 87 kg

DRUGS (2)
  1. VENLAFAXINE HCL [Suspect]
     Dosage: 10 TABLETS (OVERDOSE AMOUNT 750 MG)
     Route: 048
     Dates: start: 20100613, end: 20100613
  2. SEROQUEL [Suspect]
     Dosage: 5 TABLETS OF 300 MG (OVERDOSE AMOUNT OF 1500 MG)
     Route: 048
     Dates: start: 20100613, end: 20100613

REACTIONS (3)
  - DRUG ABUSE [None]
  - INTENTIONAL OVERDOSE [None]
  - SOMNOLENCE [None]
